FAERS Safety Report 18493580 (Version 1)
Quarter: 2020Q4

REPORT INFORMATION
  Report Type: Spontaneous
  Country: US (occurrence: US)
  Receive Date: 20201111
  Receipt Date: 20201111
  Transmission Date: 20210114
  Serious: Yes (Other)
  Sender: FDA-Public Use
  Company Number: US-GILEAD-2020-0503511

PATIENT
  Age: 88 Year
  Sex: Male

DRUGS (1)
  1. REMDESIVIR. [Suspect]
     Active Substance: REMDESIVIR
     Indication: COVID-19
     Dosage: 200 MG, ONCE
     Route: 041
     Dates: start: 20201025, end: 20201025

REACTIONS (2)
  - Deafness [Unknown]
  - Dizziness [Unknown]

NARRATIVE: CASE EVENT DATE: 20201025
